FAERS Safety Report 7258603-5 (Version None)
Quarter: 2011Q1

REPORT INFORMATION
  Report Type: 
  Country: None (occurrence: None)
  Receive Date: 20110129
  Receipt Date: 20100611
  Transmission Date: 20110831
  Serious: Yes (Other)
  Sender: FDA-Public Use
  Company Number: US-ABBOTT-08P-163-0477867-99

PATIENT
  Sex: Male
  Weight: 74.91 kg

DRUGS (13)
  1. HUMIRA [Suspect]
     Route: 058
  2. SIMVASTATIN [Concomitant]
     Indication: BLOOD CHOLESTEROL
     Route: 048
  3. EXFORGE [Concomitant]
     Indication: HYPERTENSION
     Dosage: 10/320 MG
     Route: 048
  4. VITAMIN D [Concomitant]
     Indication: PAIN
     Route: 048
  5. HUMIRA [Suspect]
     Indication: ANKYLOSING SPONDYLITIS
     Route: 058
     Dates: start: 20080606, end: 20080919
  6. DIOVAN HCT [Concomitant]
     Indication: HYPERTENSION
     Dosage: 160/12.5 MG
     Route: 048
  7. CORTISONE [Concomitant]
     Indication: ECZEMA
     Dates: start: 20060101
  8. DYAZIDE [Concomitant]
     Indication: FLUID RETENTION
  9. OPANA [Concomitant]
     Indication: PAIN
     Route: 048
  10. PERCOCET [Concomitant]
     Indication: PAIN
     Dosage: 10/325 MG, PRN
     Route: 048
  11. DYAZIDE [Concomitant]
     Indication: HYPERTENSION
     Route: 048
  12. PRANDIN [Concomitant]
     Indication: DIABETES MELLITUS
     Route: 048
  13. LYRICA [Concomitant]
     Indication: PAIN
     Route: 048

REACTIONS (7)
  - BASAL CELL CARCINOMA [None]
  - GASTROOESOPHAGEAL REFLUX DISEASE [None]
  - SQUAMOUS CELL CARCINOMA [None]
  - HIATUS HERNIA [None]
  - DENTAL CARIES [None]
  - TOOTH ABSCESS [None]
  - ULCER [None]
